FAERS Safety Report 17101640 (Version 1)
Quarter: 2019Q4

REPORT INFORMATION
  Report Type: Spontaneous
  Country: FR (occurrence: FR)
  Receive Date: 20191202
  Receipt Date: 20191202
  Transmission Date: 20200122
  Serious: Yes (Hospitalization)
  Sender: FDA-Public Use
  Company Number: FR-MYLANLABS-2019M1117090

PATIENT
  Age: 56 Year
  Sex: Male
  Weight: 57 kg

DRUGS (3)
  1. VALACICLOVIR [Suspect]
     Active Substance: VALACYCLOVIR HYDROCHLORIDE
     Indication: PROPHYLAXIS
     Dosage: 1000 MILLIGRAM, QD
     Route: 048
     Dates: start: 20190524, end: 20190611
  2. WELLVONE [Suspect]
     Active Substance: ATOVAQUONE
     Indication: PROPHYLAXIS
     Dosage: 750 MILLIGRAM, QD
     Route: 048
     Dates: start: 20190524, end: 20190610
  3. NEULASTA [Concomitant]
     Active Substance: PEGFILGRASTIM
     Dosage: UNK
     Route: 058
     Dates: start: 20190529, end: 20190529

REACTIONS (2)
  - Pyrexia [Recovered/Resolved]
  - Rash papular [Recovering/Resolving]

NARRATIVE: CASE EVENT DATE: 20190608
